FAERS Safety Report 16412990 (Version 2)
Quarter: 2019Q3

REPORT INFORMATION
  Report Type: Spontaneous
  Country: US (occurrence: US)
  Receive Date: 20190611
  Receipt Date: 20190718
  Transmission Date: 20191004
  Serious: Yes (Life-Threatening, Hospitalization, Other)
  Sender: FDA-Public Use
  Company Number: US-LUPIN PHARMACEUTICALS INC.-2019-03469

PATIENT
  Age: 44 Year
  Sex: Female

DRUGS (3)
  1. LAMOTRIGINE. [Suspect]
     Active Substance: LAMOTRIGINE
     Indication: BIPOLAR DISORDER
  2. LAMOTRIGINE. [Suspect]
     Active Substance: LAMOTRIGINE
     Indication: DEPRESSION
     Dosage: UNK (EMPTY BOTTLE)
     Route: 065
  3. PHENCYCLIDINE [Concomitant]
     Active Substance: PHENCYCLIDINE
     Indication: PRODUCT USED FOR UNKNOWN INDICATION
     Dosage: UNK
     Route: 065

REACTIONS (7)
  - Sinus tachycardia [Recovering/Resolving]
  - Sedation [Recovering/Resolving]
  - Overdose [Unknown]
  - Unresponsive to stimuli [Recovering/Resolving]
  - Electrocardiogram QT prolonged [Recovering/Resolving]
  - Depressed level of consciousness [Recovering/Resolving]
  - Blood creatinine increased [Unknown]
